FAERS Safety Report 6045327-5 (Version None)
Quarter: 2009Q1

REPORT INFORMATION
  Report Type: 
  Country: None (occurrence: None)
  Receive Date: 20090121
  Receipt Date: 20090114
  Transmission Date: 20090719
  Serious: Yes (Death)
  Sender: FDA-Public Use
  Company Number: PHBS2009FR00545

PATIENT

DRUGS (6)
  1. ETOPOSIDE [Suspect]
     Indication: HODGKIN'S DISEASE
     Dosage: 200 MG/M2/D DAY 1-3
  2. VINDESINE [Suspect]
     Indication: HODGKIN'S DISEASE
     Dosage: 1 MG/M2 ON DAY 1-5
  3. ADRIAMYCIN PFS [Suspect]
     Indication: HODGKIN'S DISEASE
     Dosage: 33 MG/M2 ON DAYS 1-3
     Route: 042
  4. CARMUSTINE [Suspect]
     Indication: HODGKIN'S DISEASE
  5. METHYLPREDNISOLONE 16MG TAB [Suspect]
     Indication: HODGKIN'S DISEASE
  6. IRRADIATION [Concomitant]
     Indication: HODGKIN'S DISEASE

REACTIONS (1)
  - DRUG TOXICITY [None]
